FAERS Safety Report 21822888 (Version 1)
Quarter: 2023Q1

REPORT INFORMATION
  Report Type: Spontaneous
  Country: US (occurrence: None)
  Receive Date: 20230104
  Receipt Date: 20230104
  Transmission Date: 20230417
  Serious: Yes (Hospitalization)
  Sender: FDA-Public Use
  Company Number: None

PATIENT
  Age: 25 Year
  Sex: Male
  Weight: 76.5 kg

DRUGS (2)
  1. BENZEDREX [Suspect]
     Active Substance: PROPYLHEXEDRINE
     Indication: Product used for unknown indication
  2. NASONEX [Suspect]
     Active Substance: MOMETASONE FUROATE

REACTIONS (3)
  - Seizure [None]
  - Product use in unapproved indication [None]
  - Drug dependence [None]

NARRATIVE: CASE EVENT DATE: 20230104
